FAERS Safety Report 24842497 (Version 2)
Quarter: 2025Q1

REPORT INFORMATION
  Report Type: Report from Study
  Country: GB (occurrence: GB)
  Receive Date: 20250115
  Receipt Date: 20250116
  Transmission Date: 20250409
  Serious: Yes (Hospitalization)
  Sender: ABBVIE
  Company Number: GB-ABBVIE-6058519

PATIENT
  Age: 60 Year
  Sex: Male

DRUGS (1)
  1. SKYRIZI [Suspect]
     Active Substance: RISANKIZUMAB-RZAA
     Indication: Psoriasis
     Dosage: 150MG/1ML?LAST ADMIN DATE: DEC 2024
     Route: 058
     Dates: start: 20240830

REACTIONS (1)
  - Facial operation [Recovering/Resolving]

NARRATIVE: CASE EVENT DATE: 20241217
